FAERS Safety Report 6318483-9 (Version None)
Quarter: 2009Q3

REPORT INFORMATION
  Report Type: 
  Country: None (occurrence: None)
  Receive Date: 20090821
  Receipt Date: 20090818
  Transmission Date: 20100115
  Serious: Yes (Death, Hospitalization)
  Sender: FDA-Public Use
  Company Number: GB-BRISTOL-MYERS SQUIBB COMPANY-14741599

PATIENT
  Age: 70 Year
  Sex: Female
  Weight: 75 kg

DRUGS (7)
  1. CETUXIMAB [Suspect]
     Indication: COLORECTAL CANCER
     Dosage: STRENGTH-5MG/ML.
     Route: 042
     Dates: start: 20090520, end: 20090724
  2. OXALIPLATIN [Suspect]
     Indication: COLORECTAL CANCER
     Route: 042
     Dates: start: 20090520, end: 20090717
  3. FLUOROURACIL [Suspect]
     Indication: COLORECTAL CANCER
     Dosage: ALSO 4000MG GIVEN IN IV FROM 20MAY-17JUL09
     Route: 040
     Dates: start: 20090520, end: 20090717
  4. ONDANSETRON [Concomitant]
     Route: 048
     Dates: start: 20090717, end: 20090719
  5. DEXAMETHASONE [Concomitant]
     Route: 048
     Dates: start: 20090718, end: 20090720
  6. RANITIDINE [Concomitant]
     Route: 048
     Dates: start: 20090101, end: 20090801
  7. DOXYCYCLINE [Concomitant]
     Route: 048
     Dates: start: 20090710, end: 20090801

REACTIONS (4)
  - DEHYDRATION [None]
  - DIARRHOEA [None]
  - VISCERAL ARTERIAL ISCHAEMIA [None]
  - VOMITING [None]
